FAERS Safety Report 9781944 (Version 1)
Quarter: 2013Q4

REPORT INFORMATION
  Report Type: Spontaneous
  Country: BR (occurrence: BR)
  Receive Date: 20131225
  Receipt Date: 20131225
  Transmission Date: 20140711
  Serious: Yes (Hospitalization)
  Sender: FDA-Public Use
  Company Number: PHHY2013BR151163

PATIENT
  Age: 87 Year
  Sex: Male

DRUGS (3)
  1. EXELON [Suspect]
     Indication: DEMENTIA ALZHEIMER^S TYPE
     Dosage: 4.5 MG (1 CAPSULE) IN MORNING AND AT NIGHT
     Route: 048
  2. EXELON [Suspect]
     Dosage: 6 MG, IN MORNING AND AT NIGHT
  3. ALOIS [Suspect]
     Indication: DEMENTIA ALZHEIMER^S TYPE
     Dosage: 10 MG, UNK

REACTIONS (11)
  - Nervousness [Recovered/Resolved]
  - Self injurious behaviour [Recovered/Resolved]
  - Renal failure [Recovered/Resolved]
  - Local swelling [Not Recovered/Not Resolved]
  - Blood pressure decreased [Recovered/Resolved]
  - Bradycardia [Recovered/Resolved]
  - Agitation [Recovered/Resolved]
  - Speech disorder [Not Recovered/Not Resolved]
  - Dysphagia [Recovered/Resolved]
  - Insomnia [Not Recovered/Not Resolved]
  - Drug administration error [Unknown]
